FAERS Safety Report 7909054-9 (Version None)
Quarter: 2011Q4

REPORT INFORMATION
  Report Type: 
  Country: None (occurrence: None)
  Receive Date: 20111111
  Receipt Date: 20111103
  Transmission Date: 20120403
  Serious: Yes (Hospitalization, Other)
  Sender: FDA-Public Use
  Company Number: NL-MEDIMMUNE-MEDI-0013856

PATIENT
  Sex: Male
  Weight: 6.93 kg

DRUGS (7)
  1. HYDROCHLOROTHIAZIDE [Concomitant]
  2. FUROSEMIDE [Concomitant]
  3. COTIMOXAZOL [Concomitant]
  4. SODIUM CHLORIDE [Concomitant]
  5. SYNAGIS [Suspect]
     Indication: BRONCHOPULMONARY DYSPLASIA
     Route: 030
     Dates: start: 20110908, end: 20111007
  6. RANITIDINE HYDROCHLORIDE [Concomitant]
  7. DOMPERIDONE MALEATE [Concomitant]

REACTIONS (2)
  - WEIGHT GAIN POOR [None]
  - HYPOPHAGIA [None]
